FAERS Safety Report 6188470-2 (Version None)
Quarter: 2009Q2

REPORT INFORMATION
  Report Type: 
  Country: None (occurrence: None)
  Receive Date: 20090513
  Receipt Date: 20090430
  Transmission Date: 20091009
  Serious: Yes (Death)
  Sender: FDA-Public Use
  Company Number: FR-AVENTIS-200910947FR

PATIENT
  Age: 60 Year
  Sex: Male
  Weight: 61 kg

DRUGS (4)
  1. RILUTEK [Suspect]
     Indication: AMYOTROPHIC LATERAL SCLEROSIS
     Dosage: DOSE: 50-50
     Route: 048
     Dates: start: 20090210, end: 20090211
  2. EZETROL [Concomitant]
     Route: 048
  3. GLICLAZIDE [Concomitant]
     Indication: DIABETES MELLITUS
     Route: 048
  4. SERTRALINE HCL [Concomitant]
     Indication: ANTIDEPRESSANT THERAPY
     Route: 048

REACTIONS (3)
  - DEATH [None]
  - SUFFOCATION FEELING [None]
  - TACHYCARDIA [None]
